FAERS Safety Report 23438190 (Version 1)
Quarter: 2024Q1

REPORT INFORMATION
  Report Type: Report from Study
  Country: US (occurrence: US)
  Receive Date: 20240124
  Receipt Date: 20240124
  Transmission Date: 20240409
  Serious: Yes (Other)
  Sender: FDA-Public Use
  Company Number: US-ABBVIE-5597308

PATIENT
  Age: 53 Year
  Sex: Female

DRUGS (1)
  1. RINVOQ [Suspect]
     Active Substance: UPADACITINIB
     Indication: Rheumatoid arthritis
     Route: 048
     Dates: start: 20230925, end: 20231201

REACTIONS (3)
  - Arthrotomy [Recovering/Resolving]
  - Percutaneous epidural neuroplasty [Recovering/Resolving]
  - Tenolysis [Recovering/Resolving]

NARRATIVE: CASE EVENT DATE: 20231212
